FAERS Safety Report 17395764 (Version 1)
Quarter: 2020Q1

REPORT INFORMATION
  Report Type: Spontaneous
  Country: US (occurrence: US)
  Receive Date: 20200206
  Receipt Date: 20200206
  Transmission Date: 20200409
  Serious: Yes (Other)
  Sender: FDA-Public Use
  Company Number: None

PATIENT
  Age: 76 Year
  Sex: Male
  Weight: 81 kg

DRUGS (5)
  1. FLONASE [Suspect]
     Active Substance: FLUTICASONE PROPIONATE
     Indication: NASAL CONGESTION
     Dosage: ?          QUANTITY:2 SPRAY(S);OTHER ROUTE:NASAL SPRAY?
     Dates: start: 20200106, end: 20200122
  2. URSODIOL. [Concomitant]
     Active Substance: URSODIOL
  3. XARELTO [Concomitant]
     Active Substance: RIVAROXABAN
  4. PROPAFENONE. [Concomitant]
     Active Substance: PROPAFENONE
  5. SULFASALAZINE. [Concomitant]
     Active Substance: SULFASALAZINE

REACTIONS (1)
  - Anosmia [None]

NARRATIVE: CASE EVENT DATE: 20200115
